FAERS Safety Report 9313068 (Version 2)
Quarter: 2013Q3

REPORT INFORMATION
  Report Type: Spontaneous
  Country: US (occurrence: US)
  Receive Date: 20130528
  Receipt Date: 20130828
  Transmission Date: 20140515
  Serious: No
  Sender: FDA-Public Use
  Company Number: US-ABBOTT-13P-163-1083844-00

PATIENT
  Age: 68 Year
  Sex: Male
  Weight: 102.15 kg

DRUGS (13)
  1. ANDROGEL [Suspect]
     Indication: BLOOD TESTOSTERONE DECREASED
     Route: 061
     Dates: start: 201204
  2. ANDROGEL [Suspect]
     Dates: start: 2011, end: 201204
  3. GLUCOPHAGE [Concomitant]
     Indication: DIABETES MELLITUS
  4. PROGABALIN [Concomitant]
     Indication: NEURALGIA
  5. BABY ASPIRIN [Concomitant]
     Indication: CARDIAC DISORDER
  6. LORATIDINE [Concomitant]
     Indication: HYPERSENSITIVITY
  7. HYDROCHLOROTHIAZIDE [Concomitant]
     Indication: OEDEMA PERIPHERAL
  8. MULTIVITAMINS [Concomitant]
     Indication: VITAMIN SUPPLEMENTATION
  9. FISH OIL [Concomitant]
     Indication: ANGIOPATHY
  10. B-12 [Concomitant]
     Indication: SUPPLEMENTATION THERAPY
  11. ENALAPRIL [Concomitant]
     Indication: HYPERTENSION
  12. AMLODIPINE [Concomitant]
     Indication: CARDIAC DISORDER
  13. ATORVASTATIN [Concomitant]
     Indication: BLOOD CHOLESTEROL INCREASED

REACTIONS (4)
  - Acne [Not Recovered/Not Resolved]
  - Application site pruritus [Not Recovered/Not Resolved]
  - Blood testosterone decreased [Recovered/Resolved]
  - Dry skin [Not Recovered/Not Resolved]
